FAERS Safety Report 8021640-7 (Version None)
Quarter: 2012Q1

REPORT INFORMATION
  Report Type: 
  Country: None (occurrence: None)
  Receive Date: 20120104
  Receipt Date: 20111227
  Transmission Date: 20120608
  Serious: Yes (Death)
  Sender: FDA-Public Use
  Company Number: US-JNJFOC-20111211907

PATIENT
  Age: 41 Year
  Sex: Female

DRUGS (5)
  1. TRAMADOL HCL [Suspect]
     Indication: SUICIDE ATTEMPT
     Route: 048
  2. PREGABALIN [Concomitant]
     Indication: FIBROMYALGIA
     Route: 065
  3. TRAMADOL HCL [Suspect]
     Indication: FIBROMYALGIA
     Route: 048
  4. SALICYLATES NOS [Concomitant]
     Route: 065
  5. ACETAMINOPHEN [Concomitant]
     Route: 065

REACTIONS (1)
  - TOXICITY TO VARIOUS AGENTS [None]
